FAERS Safety Report 24695815 (Version 4)
Quarter: 2025Q1

REPORT INFORMATION
  Report Type: Report from Study
  Country: US (occurrence: US)
  Receive Date: 20241204
  Receipt Date: 20250129
  Transmission Date: 20250409
  Serious: Yes (Other)
  Sender: JAZZ
  Company Number: US-JAZZ PHARMACEUTICALS-2024-US-022515

PATIENT
  Age: 39 Year
  Sex: Female
  Weight: 99 kg

DRUGS (49)
  1. XYWAV [Suspect]
     Active Substance: CALCIUM OXYBATE\MAGNESIUM OXYBATE\POTASSIUM OXYBATE\SODIUM OXYBATE
     Indication: Narcolepsy
     Dosage: 4.5 GRAM, BID
  2. XYWAV [Suspect]
     Active Substance: CALCIUM OXYBATE\MAGNESIUM OXYBATE\POTASSIUM OXYBATE\SODIUM OXYBATE
     Indication: Cataplexy
  3. XYWAV [Suspect]
     Active Substance: CALCIUM OXYBATE\MAGNESIUM OXYBATE\POTASSIUM OXYBATE\SODIUM OXYBATE
     Indication: Somnolence
  4. DEXTROAMPHETAMINE [Concomitant]
     Active Substance: DEXTROAMPHETAMINE
     Indication: Product used for unknown indication
     Dates: start: 20231130
  5. GABAPENTIN [Concomitant]
     Active Substance: GABAPENTIN
     Indication: Product used for unknown indication
     Dates: start: 20241211
  6. MODAFINIL [Concomitant]
     Active Substance: MODAFINIL
     Indication: Product used for unknown indication
     Dates: start: 20231009
  7. ADAPALENE [Concomitant]
     Active Substance: ADAPALENE
     Indication: Product used for unknown indication
  8. ALBUTEROL SULFATE [Concomitant]
     Active Substance: ALBUTEROL SULFATE
     Indication: Dyspnoea
  9. ALBUTEROL SULFATE [Concomitant]
     Active Substance: ALBUTEROL SULFATE
     Indication: Wheezing
  10. AMITRIPTYLINE [Concomitant]
     Active Substance: AMITRIPTYLINE
     Indication: Product used for unknown indication
  11. AMOXICILLIN\CLAVULANATE POTASSIUM [Concomitant]
     Active Substance: AMOXICILLIN\CLAVULANATE POTASSIUM
     Indication: Product used for unknown indication
  12. AMOXICILLIN\CLAVULANATE POTASSIUM [Concomitant]
     Active Substance: AMOXICILLIN\CLAVULANATE POTASSIUM
  13. AZELASTINE [Concomitant]
     Active Substance: AZELASTINE
     Indication: Product used for unknown indication
  14. AZITHROMYCIN [Concomitant]
     Active Substance: AZITHROMYCIN
     Indication: Product used for unknown indication
  15. BENZONATATE [Concomitant]
     Active Substance: BENZONATATE
     Indication: Product used for unknown indication
     Dosage: 100 MILLIGRAM, QID
  16. BENZONATATE [Concomitant]
     Active Substance: BENZONATATE
     Dosage: 200 MILLIGRAM, QID
  17. CLONAZEPAM [Concomitant]
     Active Substance: CLONAZEPAM
     Indication: Product used for unknown indication
  18. CLOTRIMAZOLE [Concomitant]
     Active Substance: CLOTRIMAZOLE
     Indication: Product used for unknown indication
  19. CYCLOBENZAPRINE [Concomitant]
     Active Substance: CYCLOBENZAPRINE
     Indication: Product used for unknown indication
  20. DOXYCYCLINE HYCLATE [Concomitant]
     Active Substance: DOXYCYCLINE HYCLATE
     Indication: Product used for unknown indication
  21. ECONAZOLE NITRATE [Concomitant]
     Active Substance: ECONAZOLE NITRATE
     Indication: Product used for unknown indication
  22. EPINEPHRINE [Concomitant]
     Active Substance: EPINEPHRINE
     Indication: Product used for unknown indication
  23. FLUCONAZOLE [Concomitant]
     Active Substance: FLUCONAZOLE
     Indication: Product used for unknown indication
  24. LAMOTRIGINE EXTENDED RELEASE [Concomitant]
     Active Substance: LAMOTRIGINE
     Indication: Product used for unknown indication
  25. LAMOTRIGINE EXTENDED RELEASE [Concomitant]
     Active Substance: LAMOTRIGINE
  26. LEVALBUTEROL HYDROCHLORIDE [Concomitant]
     Active Substance: LEVALBUTEROL HYDROCHLORIDE
     Indication: Product used for unknown indication
  27. METFORMIN [Concomitant]
     Active Substance: METFORMIN HYDROCHLORIDE
     Indication: Product used for unknown indication
  28. METHOCARBAMOL [Concomitant]
     Active Substance: METHOCARBAMOL
     Indication: Product used for unknown indication
  29. METHOCARBAMOL [Concomitant]
     Active Substance: METHOCARBAMOL
  30. MONTELUKAST [Concomitant]
     Active Substance: MONTELUKAST
     Indication: Product used for unknown indication
  31. NURTEC ODT [Concomitant]
     Active Substance: RIMEGEPANT SULFATE
     Indication: Product used for unknown indication
  32. NYSTATIN [Concomitant]
     Active Substance: NYSTATIN
     Indication: Product used for unknown indication
  33. PAROXETINE [Concomitant]
     Active Substance: PAROXETINE
     Indication: Product used for unknown indication
  34. PAXIL CR [Concomitant]
     Active Substance: PAROXETINE HYDROCHLORIDE
     Indication: Product used for unknown indication
  35. PREDNISONE [Concomitant]
     Active Substance: PREDNISONE
     Indication: Product used for unknown indication
  36. QUETIAPINE [Concomitant]
     Active Substance: QUETIAPINE
     Indication: Product used for unknown indication
  37. QUETIAPINE [Concomitant]
     Active Substance: QUETIAPINE
  38. ROPINIROLE [Concomitant]
     Active Substance: ROPINIROLE
     Indication: Product used for unknown indication
  39. SUCRALFATE AND BERBERINE [BERBERINE HYDROCHLORIDE;SUCRALFATE] [Concomitant]
     Indication: Product used for unknown indication
  40. TIZANIDINE [Concomitant]
     Active Substance: TIZANIDINE
     Indication: Product used for unknown indication
  41. TRELEGY ELLIPTA [Concomitant]
     Active Substance: FLUTICASONE FUROATE\UMECLIDINIUM BROMIDE\VILANTEROL TRIFENATATE
     Indication: Product used for unknown indication
  42. TRELEGY ELLIPTA [Concomitant]
     Active Substance: FLUTICASONE FUROATE\UMECLIDINIUM BROMIDE\VILANTEROL TRIFENATATE
  43. VILAZODONE [Concomitant]
     Active Substance: VILAZODONE
     Indication: Product used for unknown indication
  44. VILAZODONE [Concomitant]
     Active Substance: VILAZODONE
  45. VILAZODONE [Concomitant]
     Active Substance: VILAZODONE
  46. WAKIX [Concomitant]
     Active Substance: PITOLISANT HYDROCHLORIDE
     Indication: Product used for unknown indication
  47. ZONISAMIDE [Concomitant]
     Active Substance: ZONISAMIDE
     Indication: Product used for unknown indication
  48. ZONISAMIDE [Concomitant]
     Active Substance: ZONISAMIDE
  49. DIPHENHYDRAMINE [Concomitant]
     Active Substance: DIPHENHYDRAMINE
     Indication: Product used for unknown indication

REACTIONS (5)
  - Breast operation [Unknown]
  - Condition aggravated [Unknown]
  - Neck pain [Unknown]
  - Cough [Unknown]
  - Gastrooesophageal reflux disease [Unknown]

NARRATIVE: CASE EVENT DATE: 20241001
